FAERS Safety Report 7065415-4 (Version None)
Quarter: 2010Q4

REPORT INFORMATION
  Report Type: 
  Country: None (occurrence: None)
  Receive Date: 20101019
  Receipt Date: 20101005
  Transmission Date: 20110411
  Serious: Yes (Hospitalization)
  Sender: FDA-Public Use
  Company Number: DEP_00416_2010

PATIENT
  Age: 50 Year
  Sex: Female

DRUGS (1)
  1. CIPROFLOXACIN [Suspect]
     Indication: CYSTITIS
     Dosage: DF

REACTIONS (5)
  - BONE MARROW FAILURE [None]
  - IDIOSYNCRATIC DRUG REACTION [None]
  - IMMUNOSUPPRESSION [None]
  - NAUSEA [None]
  - OESOPHAGEAL CANDIDIASIS [None]
